FAERS Safety Report 22905445 (Version 4)
Quarter: 2024Q1

REPORT INFORMATION
  Report Type: Spontaneous
  Country: AT (occurrence: AT)
  Receive Date: 20230905
  Receipt Date: 20240321
  Transmission Date: 20240410
  Serious: Yes (Hospitalization, Other)
  Sender: FDA-Public Use
  Company Number: AT-ROCHE-2215193

PATIENT
  Age: 65 Year
  Sex: Female
  Weight: 80.4 kg

DRUGS (129)
  1. BLEOMYCIN [Suspect]
     Active Substance: BLEOMYCIN SULFATE
     Indication: Breast cancer metastatic
     Dosage: 1 DOSAGE FORM, QD (DRUG WAS DISCONTINUED AS PLANNED NUMBER OF CYCLES COMPLETED)
     Route: 042
     Dates: start: 20210105, end: 20210105
  2. BLEOMYCIN [Suspect]
     Active Substance: BLEOMYCIN SULFATE
     Indication: Breast cancer metastatic
     Dosage: 26.85 MG, QD (DRUG WAS DISCONTINUED AS PLANNED NUMBER OF CYCLES COMPLETED)
     Route: 042
     Dates: start: 20200519, end: 20200519
  3. CAPECITABINE [Suspect]
     Active Substance: CAPECITABINE
     Indication: Breast cancer metastatic
     Dosage: 3500 MG, QD (MOST RECENT DOSE PRIOR TO THE EVENT LYMPH NODE METASTATIS AXILLA AND PORT A CATH INFECT
     Route: 048
     Dates: start: 20191002, end: 20200107
  4. CAPECITABINE [Suspect]
     Active Substance: CAPECITABINE
     Indication: Breast cancer
  5. DOCETAXEL [Suspect]
     Active Substance: DOCETAXEL\DOCETAXEL ANHYDROUS
     Indication: Breast cancer metastatic
     Dosage: 570 MG, TIW (MOST RECENT DOSE PRIOR TO THE EVENTS: 09/JUN/2017)
     Route: 042
     Dates: start: 20170224, end: 20170317
  6. DOXIL [Suspect]
     Active Substance: DOXORUBICIN HYDROCHLORIDE
     Indication: Breast cancer metastatic
     Route: 042
     Dates: start: 20210608, end: 20210608
  7. FULVESTRANT [Suspect]
     Active Substance: FULVESTRANT
     Indication: Breast cancer metastatic
     Dosage: 500 MG (MOST RECENT DOSE PRIOR TO THE EVENT LYMPH NODE METASTATIS AXILLA AND PORT A CATH INFECTION:
     Route: 030
     Dates: start: 20171002, end: 20171115
  8. FULVESTRANT [Suspect]
     Active Substance: FULVESTRANT
     Indication: Breast cancer
  9. FASLODEX [Suspect]
     Active Substance: FULVESTRANT
     Indication: Breast cancer metastatic
     Dosage: 500.000MG
     Route: 030
     Dates: start: 20171116, end: 20191001
  10. FASLODEX [Suspect]
     Active Substance: FULVESTRANT
     Dosage: TWICE A WEEK/MOST RECENT DOSE PRIOR TO THE EVENT LYMPH NODE METASTATIS AXILLA AND PORT A CATH INFECT
     Route: 030
     Dates: start: 20171002, end: 20171115
  11. HERCEPTIN [Suspect]
     Active Substance: TRASTUZUMAB
     Dosage: 390.000MG
     Route: 042
     Dates: start: 20170410, end: 20170427
  12. HERCEPTIN [Suspect]
     Active Substance: TRASTUZUMAB
     Indication: Breast cancer metastatic
     Dosage: 414.000MG TIW
     Route: 042
     Dates: start: 20170609, end: 20170630
  13. HERCEPTIN [Suspect]
     Active Substance: TRASTUZUMAB
     Dosage: 432.000MG QD
     Route: 042
     Dates: start: 20170519, end: 20170519
  14. HERCEPTIN [Suspect]
     Active Substance: TRASTUZUMAB
     Dosage: 462.000MG TIW
     Route: 042
     Dates: start: 20170810, end: 20190213
  15. HERCEPTIN [Suspect]
     Active Substance: TRASTUZUMAB
     Dosage: 468.000MG QD
     Route: 042
     Dates: start: 20170720, end: 20170720
  16. HERCEPTIN [Suspect]
     Active Substance: TRASTUZUMAB
     Dosage: MOST RECENT DOSE PRIOR TO THE EVENTS: 10/AUG/2017
     Route: 042
     Dates: start: 20170224, end: 20170224
  17. NAVELBINE [Suspect]
     Active Substance: VINORELBINE TARTRATE
     Indication: Breast cancer metastatic
     Dosage: 45.000MG TIW
     Route: 042
     Dates: start: 20200422, end: 20200722
  18. PERTUZUMAB [Suspect]
     Active Substance: PERTUZUMAB
     Indication: Breast cancer metastatic
     Dosage: 840 MG, QD (MOST RECENT DOSE PRIOR TO THE EVENT WORSENING OF BRAIN METASTASES: 17/MAR/2017 MOST RECE
     Route: 042
     Dates: start: 20170224, end: 20170224
  19. TAXOTERE [Suspect]
     Active Substance: DOCETAXEL
     Dosage: 134.250MG TIW
     Route: 042
     Dates: start: 20210317, end: 20210428
  20. TAXOTERE [Suspect]
     Active Substance: DOCETAXEL
     Indication: Breast cancer metastatic
     Dosage: 175.000MG
     Route: 042
     Dates: start: 20170410, end: 20170427
  21. TAXOTERE [Suspect]
     Active Substance: DOCETAXEL
     Dosage: 180.000MG TIW
     Route: 042
     Dates: start: 20170609, end: 20170630
  22. TAXOTERE [Suspect]
     Active Substance: DOCETAXEL
     Dosage: 183.000MG QD
     Route: 042
     Dates: start: 20170519, end: 20170519
  23. TAXOTERE [Suspect]
     Active Substance: DOCETAXEL
     Dosage: MOST RECENT DOSE PRIOR TO THE EVENTS: 09/JUN/2017
     Route: 042
     Dates: start: 20170224, end: 20170317
  24. TRASTUZUMAB [Suspect]
     Active Substance: TRASTUZUMAB
     Indication: Breast cancer metastatic
     Dosage: 624 MG,QD (MOST RECENT DOSE PRIOR TO THE EVENTS: 10/AUG/2017)
     Route: 042
     Dates: start: 20170224, end: 20170224
  25. TRASTUZUMAB DERUXTECAN [Suspect]
     Active Substance: TRASTUZUMAB DERUXTECAN
     Indication: Breast cancer metastatic
     Route: 058
     Dates: start: 20200814, end: 20201015
  26. ADO-TRASTUZUMAB EMTANSINE [Suspect]
     Active Substance: ADO-TRASTUZUMAB EMTANSINE
     Indication: Breast cancer metastatic
     Dosage: 270 MG, TIW
     Route: 042
     Dates: start: 20190306, end: 20190909
  27. ADO-TRASTUZUMAB EMTANSINE [Suspect]
     Active Substance: ADO-TRASTUZUMAB EMTANSINE
     Indication: Breast cancer metastatic
  28. TUCATINIB [Suspect]
     Active Substance: TUCATINIB
     Indication: Breast cancer metastatic
     Dosage: 300.000MG
     Route: 048
     Dates: start: 20201230, end: 20210210
  29. TYKERB [Suspect]
     Active Substance: LAPATINIB DITOSYLATE
     Indication: Breast cancer metastatic
     Dosage: 1250 MG, QD (MOST RECENT DOSE PRIOR TO THE EVENT LYMPH NODE METASTATIS AXILLA AND PORT A CATH INFECT
     Route: 048
     Dates: start: 20191002, end: 20200107
  30. TYKERB [Suspect]
     Active Substance: LAPATINIB DITOSYLATE
     Indication: Breast cancer
  31. VINORELBINE [Suspect]
     Active Substance: VINORELBINE TARTRATE
     Indication: Breast cancer metastatic
     Dosage: 45 MG, TIW
     Route: 042
     Dates: start: 20200422
  32. XELODA [Suspect]
     Active Substance: CAPECITABINE
     Indication: Breast cancer
     Dosage: 3500 MG, QD (MOST RECENT DOSE PRIOR TO THE EVENT LYMPH NODE METASTATIS AXILLA AND PORT A CATH INFECT
     Route: 048
     Dates: start: 20191002, end: 20200107
  33. XELODA [Suspect]
     Active Substance: CAPECITABINE
     Indication: Breast cancer metastatic
  34. AMOXICILLIN\CLAVULANIC ACID [Concomitant]
     Active Substance: AMOXICILLIN\CLAVULANIC ACID
     Indication: Product used for unknown indication
     Dosage: 1.000G
     Route: 048
     Dates: start: 20170711, end: 20170713
  35. AMOXICILLIN\CLAVULANATE POTASSIUM [Concomitant]
     Active Substance: AMOXICILLIN\CLAVULANATE POTASSIUM
     Indication: Product used for unknown indication
     Dosage: 1.000G
     Route: 048
     Dates: start: 20181218, end: 20181222
  36. AMPHOTERICIN B [Concomitant]
     Active Substance: AMPHOTERICIN B
     Indication: Product used for unknown indication
     Dosage: UNK
     Route: 065
  37. CARBOXYMETHYLCELLULOSE SODIUM [Concomitant]
     Active Substance: CARBOXYMETHYLCELLULOSE SODIUM
     Indication: Product used for unknown indication
     Route: 065
  38. BETAISODONA [Concomitant]
     Active Substance: POVIDONE-IODINE
     Indication: Skin fissures
     Dosage: ONGOING NOT CHECKED
     Route: 065
     Dates: start: 20200430, end: 20200515
  39. BETAMETHASONE DIPROPIONATE [Concomitant]
     Active Substance: BETAMETHASONE DIPROPIONATE
     Indication: Eczema
     Route: 061
     Dates: start: 20191122, end: 20191215
  40. BUTYLSCOPOLAMINE BROMIDE [Concomitant]
     Active Substance: BUTYLSCOPOLAMINE BROMIDE
     Indication: Product used for unknown indication
     Route: 065
  41. VITAMINS WITH MINERALS [Concomitant]
     Active Substance: MINERALS\VITAMINS
     Indication: Product used for unknown indication
     Dosage: ONGOING = CHECKED
     Route: 065
     Dates: start: 20170203
  42. CEFEPIME [Concomitant]
     Active Substance: CEFEPIME HYDROCHLORIDE
     Indication: Product used for unknown indication
     Dosage: UNK
     Route: 065
  43. CETYLPYRIDINIUM CHLORIDE ANHYDROUS [Concomitant]
     Indication: Cough
     Dosage: UNK
     Route: 065
     Dates: start: 20210611, end: 20210615
  44. ELOMEL [Concomitant]
     Indication: Product used for unknown indication
     Route: 065
  45. EMEND [Concomitant]
     Active Substance: APREPITANT
     Indication: Product used for unknown indication
     Dosage: UNK
     Route: 065
     Dates: start: 20200428, end: 20200430
  46. EUTHYROX [Concomitant]
     Active Substance: LEVOTHYROXINE SODIUM
     Indication: Product used for unknown indication
     Dosage: UNK
     Route: 065
     Dates: start: 20170303
  47. FENTANYL [Concomitant]
     Active Substance: FENTANYL\FENTANYL CITRATE
     Indication: Product used for unknown indication
     Dosage: UNK
     Route: 065
     Dates: start: 20200515
  48. FILGRASTIM [Concomitant]
     Active Substance: FILGRASTIM
     Indication: Product used for unknown indication
     Route: 058
     Dates: start: 20170704, end: 20170708
  49. FUROSEMIDE [Concomitant]
     Active Substance: FUROSEMIDE
     Dosage: ONGOING = NOT CHECKEDUNK
     Route: 065
     Dates: start: 20170810, end: 20171213
  50. FUROSEMIDE [Concomitant]
     Active Substance: FUROSEMIDE
     Dosage: ONGOING = NOT CHECKEDUNK
     Route: 065
     Dates: start: 20170810, end: 20171213
  51. FUROSEMIDE [Concomitant]
     Active Substance: FUROSEMIDE
     Dosage: 20.000MG
     Route: 048
     Dates: start: 20170713, end: 20170809
  52. FUROSEMIDE [Concomitant]
     Active Substance: FUROSEMIDE
     Dosage: 20.000MG
     Route: 048
     Dates: start: 20170713, end: 20170809
  53. FUROSEMIDE [Concomitant]
     Active Substance: FUROSEMIDE
     Dosage: 40.000MG QOD
     Route: 048
     Dates: start: 20170810, end: 20190212
  54. FUROSEMIDE [Concomitant]
     Active Substance: FUROSEMIDE
     Dosage: 40.000MG QOD
     Route: 048
     Dates: start: 20170810, end: 20190212
  55. FUROSEMIDE [Concomitant]
     Active Substance: FUROSEMIDE
     Dosage: UNK
     Route: 065
     Dates: start: 20170611, end: 20170809
  56. FUROSEMIDE [Concomitant]
     Active Substance: FUROSEMIDE
     Dosage: UNK
     Route: 065
     Dates: start: 20170611, end: 20170809
  57. FUROSEMIDE [Concomitant]
     Active Substance: FUROSEMIDE
     Dosage: UNK
     Route: 065
     Dates: start: 20170611, end: 20170809
  58. FUROSEMIDE [Concomitant]
     Active Substance: FUROSEMIDE
     Dosage: UNK
     Route: 065
     Dates: start: 20170810
  59. FUROSEMIDE [Concomitant]
     Active Substance: FUROSEMIDE
     Indication: Product used for unknown indication
     Dosage: ONGOING = NOT CHECKED
     Route: 065
     Dates: start: 20170810, end: 20171213
  60. FUROSEMIDE [Concomitant]
     Active Substance: FUROSEMIDE
     Dosage: ONGOING = NOT CHECKED
     Route: 065
     Dates: start: 20170810, end: 20171213
  61. FUROSEMIDE [Concomitant]
     Active Substance: FUROSEMIDE
     Dosage: ONGOING = NOT CHECKED
     Route: 065
     Dates: start: 20170810, end: 20171213
  62. FUROSEMIDE [Concomitant]
     Active Substance: FUROSEMIDE
     Dosage: ONGOING = NOT CHECKEDUNK
     Route: 065
     Dates: start: 20170810, end: 20171213
  63. FUROSEMIDE [Concomitant]
     Active Substance: FUROSEMIDE
     Route: 065
     Dates: start: 20170810
  64. Halset [Concomitant]
     Indication: Product used for unknown indication
     Route: 065
  65. HYALURONATE SODIUM [Concomitant]
     Active Substance: HYALURONATE SODIUM
     Indication: Product used for unknown indication
     Dosage: UNK
     Route: 065
  66. HYDROMORPHONE HYDROCHLORIDE [Concomitant]
     Active Substance: HYDROMORPHONE HYDROCHLORIDE
     Indication: Product used for unknown indication
     Dosage: UNK
     Route: 065
     Dates: start: 20210611, end: 20210615
  67. KCL [Concomitant]
     Active Substance: POTASSIUM CHLORIDE
     Dosage: 600.000MG
     Route: 048
     Dates: start: 20170429, end: 20190305
  68. KCL [Concomitant]
     Active Substance: POTASSIUM CHLORIDE
     Dosage: UNK
     Route: 065
     Dates: start: 20170429, end: 20190305
  69. KCL [Concomitant]
     Active Substance: POTASSIUM CHLORIDE
     Dosage: UNK
     Route: 065
     Dates: start: 20170429
  70. KCL [Concomitant]
     Active Substance: POTASSIUM CHLORIDE
     Indication: Product used for unknown indication
     Dosage: UNK
     Route: 065
     Dates: start: 20170429
  71. KCL [Concomitant]
     Active Substance: POTASSIUM CHLORIDE
     Route: 065
     Dates: start: 20170429
  72. KCL [Concomitant]
     Active Substance: POTASSIUM CHLORIDE
     Route: 065
     Dates: start: 20170429
  73. KCL [Concomitant]
     Active Substance: POTASSIUM CHLORIDE
     Route: 065
     Dates: start: 20170429
  74. KCL [Concomitant]
     Active Substance: POTASSIUM CHLORIDE
     Route: 065
     Dates: start: 20170429
  75. KCL [Concomitant]
     Active Substance: POTASSIUM CHLORIDE
     Route: 065
     Dates: start: 20170429
  76. Kalioral [Concomitant]
     Indication: Product used for unknown indication
     Dosage: UNK
     Route: 065
     Dates: start: 20200427, end: 20200428
  77. LACTULOSE [Concomitant]
     Active Substance: LACTULOSE
     Indication: Product used for unknown indication
     Dosage: UNK
     Route: 065
  78. Leukichtan [Concomitant]
     Indication: Product used for unknown indication
     Dosage: UNK
     Route: 065
     Dates: start: 20200430, end: 20200515
  79. LIDOCAINE [Concomitant]
     Active Substance: LIDOCAINE
     Indication: Product used for unknown indication
     Dosage: UNK
     Route: 065
  80. EDOXABAN TOSYLATE [Concomitant]
     Active Substance: EDOXABAN TOSYLATE
     Indication: Product used for unknown indication
     Dosage: UNK
     Route: 065
     Dates: start: 20191120, end: 20200608
  81. LOVENOX [Concomitant]
     Active Substance: ENOXAPARIN SODIUM
     Indication: Product used for unknown indication
     Dosage: UNK
     Route: 065
     Dates: start: 20170224, end: 20171130
  82. SILICON [Concomitant]
     Active Substance: SILICON
     Indication: Skin fissures
     Dosage: ONGOING = NOT CHECKED
     Route: 065
     Dates: start: 20200521, end: 20200602
  83. SILICON [Concomitant]
     Active Substance: SILICON
     Dosage: ONGOING = NOT CHECKED
     Route: 065
     Dates: start: 20200521, end: 20200602
  84. SILICON [Concomitant]
     Active Substance: SILICON
     Dosage: ONGOING = NOT CHECKED
     Route: 065
     Dates: start: 20200521, end: 20200602
  85. SILICON [Concomitant]
     Active Substance: SILICON
     Dosage: ONGOING = NOT CHECKED
     Route: 065
     Dates: start: 20200521, end: 20200602
  86. SILICON [Concomitant]
     Active Substance: SILICON
     Dosage: ONGOING = NOT CHECKED
     Route: 065
     Dates: start: 20200521, end: 20200602
  87. SILICON [Concomitant]
     Active Substance: SILICON
     Dosage: ONGOING = NOT CHECKED
     Route: 065
     Dates: start: 20200521, end: 20200602
  88. SILICON [Concomitant]
     Active Substance: SILICON
     Dosage: ONGOING = NOT CHECKED
     Route: 065
     Dates: start: 20200521, end: 20200602
  89. SILICON [Concomitant]
     Active Substance: SILICON
     Dosage: ONGOING = NOT CHECKED
     Route: 065
     Dates: start: 20200521, end: 20200602
  90. SILICON [Concomitant]
     Active Substance: SILICON
     Dosage: ONGOING = NOT CHECKEDUNK
     Route: 065
     Dates: start: 20200521, end: 20200602
  91. SILICON [Concomitant]
     Active Substance: SILICON
     Dosage: ONGOING = NOT CHECKEDUNK
     Route: 065
     Dates: start: 20200521, end: 20200602
  92. SILICON [Concomitant]
     Active Substance: SILICON
     Dosage: ONGOING = NOT CHECKEDUNK
     Route: 065
     Dates: start: 20200521, end: 20200602
  93. SILICON [Concomitant]
     Active Substance: SILICON
     Dosage: ONGOING = NOT CHECKEDUNK
     Route: 065
     Dates: start: 20200521, end: 20200602
  94. SILICON [Concomitant]
     Active Substance: SILICON
     Dosage: ONGOING = NOT CHECKEDUNK
     Route: 065
     Dates: start: 20200521, end: 20200602
  95. SILICON [Concomitant]
     Active Substance: SILICON
     Dosage: ONGOING = NOT CHECKEDUNK
     Route: 065
     Dates: start: 20200521, end: 20200602
  96. POLYETHYLENE GLYCOL 3350\POTASSIUM CHLORIDE\SODIUM BICARBONATE\SODIUM [Concomitant]
     Active Substance: POLYETHYLENE GLYCOL 3350\POTASSIUM CHLORIDE\SODIUM BICARBONATE\SODIUM CHLORIDE
     Indication: Product used for unknown indication
     Route: 065
  97. MORPHINE [Concomitant]
     Active Substance: MORPHINE
     Indication: Dyspnoea
     Dosage: UNK
     Route: 065
     Dates: start: 20210616, end: 20210623
  98. MORPHINE [Concomitant]
     Active Substance: MORPHINE
     Dosage: UNK
     Route: 065
     Dates: start: 20210521, end: 20210616
  99. NERIFORTE [Concomitant]
     Indication: Skin fissures
     Dosage: UNK
     Route: 065
     Dates: start: 20200430, end: 20200515
  100. Novalgin [Concomitant]
     Indication: Product used for unknown indication
     Dosage: UNK
     Route: 065
     Dates: start: 20170329, end: 20180807
  101. NOVALGINA [Concomitant]
     Active Substance: ACETAMINOPHEN\CAFFEINE
     Indication: Product used for unknown indication
     Route: 065
     Dates: start: 20170329, end: 20180807
  102. Oleovit [Concomitant]
     Indication: Product used for unknown indication
     Dosage: UNK
     Route: 065
     Dates: start: 20170329, end: 20180807
  103. OLIVE OIL [Concomitant]
     Active Substance: OLIVE OIL
     Indication: Paronychia
     Dosage: UNK
     Route: 065
     Dates: start: 20191002, end: 20200512
  104. OLIVE OIL [Concomitant]
     Active Substance: OLIVE OIL
     Dosage: UNK
     Route: 065
     Dates: start: 20191002, end: 20200512
  105. OLIVE OIL [Concomitant]
     Active Substance: OLIVE OIL
     Dosage: UNK
     Route: 065
     Dates: start: 20191002, end: 20200512
  106. OLIVE OIL [Concomitant]
     Active Substance: OLIVE OIL
     Route: 065
     Dates: start: 20191002, end: 20200512
  107. OLIVE OIL [Concomitant]
     Active Substance: OLIVE OIL
     Route: 065
     Dates: start: 20191002, end: 20200512
  108. OLIVE OIL [Concomitant]
     Active Substance: OLIVE OIL
     Route: 065
     Dates: start: 20191002, end: 20200512
  109. OLIVE OIL [Concomitant]
     Active Substance: OLIVE OIL
     Route: 065
     Dates: start: 20191002, end: 20200512
  110. OLIVE OIL [Concomitant]
     Active Substance: OLIVE OIL
     Route: 065
     Dates: start: 20191002, end: 20200512
  111. OLIVE OIL [Concomitant]
     Active Substance: OLIVE OIL
     Route: 065
     Dates: start: 20191002, end: 20200512
  112. PANTOPRAZOLE SODIUM [Concomitant]
     Active Substance: PANTOPRAZOLE SODIUM
     Indication: Product used for unknown indication
     Dosage: UNK
     Route: 065
     Dates: start: 20170722, end: 20180327
  113. PANTOPRAZOLE SODIUM [Concomitant]
     Active Substance: PANTOPRAZOLE SODIUM
     Dosage: UNK
     Route: 065
     Dates: start: 20200506, end: 20200519
  114. PANTOPRAZOLE [Concomitant]
     Active Substance: PANTOPRAZOLE
     Indication: Product used for unknown indication
     Route: 065
     Dates: start: 20170722, end: 20180327
  115. PANTOPRAZOLE [Concomitant]
     Active Substance: PANTOPRAZOLE
     Route: 065
     Dates: start: 20200506, end: 20200519
  116. ACETAMINOPHEN [Concomitant]
     Active Substance: ACETAMINOPHEN
     Indication: Product used for unknown indication
     Dosage: UNK
     Route: 065
     Dates: start: 20200506
  117. Paracodin [Concomitant]
     Indication: Product used for unknown indication
     Route: 065
  118. Paspertin [Concomitant]
     Indication: Product used for unknown indication
     Dosage: UNK
     Route: 065
     Dates: start: 20200506
  119. PONVERIDOL [Concomitant]
     Indication: Product used for unknown indication
     Route: 065
  120. PREGABALIN [Concomitant]
     Active Substance: PREGABALIN
     Indication: Product used for unknown indication
     Dosage: UNK
     Route: 065
     Dates: start: 20190821
  121. SCOTTOPECT [Concomitant]
     Indication: Product used for unknown indication
     Route: 065
  122. LEVOFLOXACIN [Concomitant]
     Active Substance: LEVOFLOXACIN
     Indication: Product used for unknown indication
     Dosage: UNK
     Route: 065
     Dates: start: 20200506, end: 20200512
  123. Temesta [Concomitant]
     Indication: Product used for unknown indication
     Route: 065
  124. TRIMETHOPRIM [Concomitant]
     Active Substance: TRIMETHOPRIM
     Indication: Product used for unknown indication
     Dosage: 200.000MG
     Route: 048
     Dates: start: 20190619, end: 20190623
  125. VITAMIN C [Concomitant]
     Active Substance: ASCORBIC ACID
     Indication: Product used for unknown indication
     Route: 065
  126. ALPRAZOLAM [Concomitant]
     Active Substance: ALPRAZOLAM
     Indication: Product used for unknown indication
     Route: 065
  127. XGEVA [Concomitant]
     Active Substance: DENOSUMAB
     Indication: Product used for unknown indication
     Dosage: UNK
     Route: 065
     Dates: start: 20170202
  128. ZIEXTENZO [Concomitant]
     Active Substance: PEGFILGRASTIM-BMEZ
     Indication: Product used for unknown indication
     Route: 065
  129. ZOFRAN [Concomitant]
     Active Substance: ONDANSETRON HYDROCHLORIDE
     Indication: Product used for unknown indication
     Dosage: UNK
     Route: 065
     Dates: start: 20200506, end: 20200519

REACTIONS (20)
  - Pseudomonal sepsis [Recovered/Resolved]
  - Streptococcal sepsis [Recovered/Resolved]
  - Sepsis [Recovered/Resolved]
  - Vascular device infection [Recovered/Resolved]
  - Metastases to central nervous system [Not Recovered/Not Resolved]
  - Brain oedema [Not Recovered/Not Resolved]
  - Metastases to lymph nodes [Not Recovered/Not Resolved]
  - Pleural effusion [Recovered/Resolved]
  - Fatigue [Not Recovered/Not Resolved]
  - Back pain [Recovered/Resolved]
  - Nausea [Recovered/Resolved]
  - Vomiting [Recovered/Resolved]
  - C-reactive protein increased [Not Recovered/Not Resolved]
  - Paronychia [Recovered/Resolved]
  - Nail bed inflammation [Not Recovered/Not Resolved]
  - Candida infection [Not Recovered/Not Resolved]
  - Nasal mucosal disorder [Recovered/Resolved]
  - Restlessness [Not Recovered/Not Resolved]
  - Skin fissures [Recovered/Resolved]
  - Eczema [Not Recovered/Not Resolved]

NARRATIVE: CASE EVENT DATE: 20170921
